FAERS Safety Report 6376129-8 (Version None)
Quarter: 2009Q3

REPORT INFORMATION
  Report Type: 
  Country: None (occurrence: None)
  Receive Date: 20090918
  Receipt Date: 20090909
  Transmission Date: 20100115
  Serious: Yes (Other)
  Sender: FDA-Public Use
  Company Number: A-JP2009-27353

PATIENT
  Age: 10 Year
  Sex: Female

DRUGS (3)
  1. TRACLEER [Suspect]
     Indication: PULMONARY ARTERIAL HYPERTENSION
     Dosage: ORAL
     Route: 048
  2. BERAPROST       (BERAPROST) [Suspect]
  3. METHIMAZOLE [Concomitant]

REACTIONS (3)
  - EYE DISORDER [None]
  - HYPERTHYROIDISM [None]
  - POTENTIATING DRUG INTERACTION [None]
